FAERS Safety Report 10916976 (Version 2)
Quarter: 2015Q2

REPORT INFORMATION
  Report Type: Spontaneous
  Country: US (occurrence: US)
  Receive Date: 20150316
  Receipt Date: 20150524
  Transmission Date: 20150821
  Serious: No
  Sender: FDA-Public Use
  Company Number: US-JNJFOC-20140605963

PATIENT
  Sex: Male
  Weight: 66.23 kg

DRUGS (1)
  1. ZYTIGA [Suspect]
     Active Substance: ABIRATERONE ACETATE
     Indication: PROSTATE CANCER
     Dosage: STARTED 2 OR 3 YEARS AGO
     Route: 048
     Dates: start: 2011, end: 2012

REACTIONS (5)
  - Hypophagia [Not Recovered/Not Resolved]
  - Drug ineffective [Recovered/Resolved]
  - Weight decreased [Not Recovered/Not Resolved]
  - Dysphagia [Not Recovered/Not Resolved]
  - Prostatic specific antigen increased [Unknown]
